FAERS Safety Report 5221650-9 (Version None)
Quarter: 2007Q1

REPORT INFORMATION
  Report Type: 
  Country: None (occurrence: None)
  Receive Date: 20070129
  Receipt Date: 20070116
  Transmission Date: 20070707
  Serious: Yes (Disabling)
  Sender: FDA-Public Use
  Company Number: PHRM2007FR00571

PATIENT
  Age: 53 Year
  Sex: Female

DRUGS (3)
  1. CORTANCYL [Concomitant]
  2. TAXOTERE [Suspect]
  3. ZOMETA [Suspect]
     Indication: METASTASES TO BONE
     Dates: start: 20030130, end: 20060302

REACTIONS (5)
  - GINGIVAL INFECTION [None]
  - HYPERBARIC OXYGEN THERAPY [None]
  - OSTEONECROSIS [None]
  - PAIN IN JAW [None]
  - PURULENT DISCHARGE [None]
